FAERS Safety Report 4280230-2 (Version None)
Quarter: 2004Q1

REPORT INFORMATION
  Report Type: 
  Country: None (occurrence: None)
  Receive Date: 20040126
  Receipt Date: 20040115
  Transmission Date: 20041129
  Serious: Yes (Hospitalization, Other)
  Sender: FDA-Public Use
  Company Number: 2004003186

PATIENT
  Age: 52 Year
  Sex: Male
  Weight: 75 kg

DRUGS (13)
  1. VFEND [Suspect]
     Indication: SCEDOSPORIUM INFECTION
     Dosage: SEE IMAGE
     Route: 048
     Dates: start: 20040101, end: 20040101
  2. VFEND [Suspect]
     Indication: SCEDOSPORIUM INFECTION
     Dosage: SEE IMAGE
     Route: 048
     Dates: start: 20040101
  3. CASPOFUNGIN (CASPOFUNGIN) [Concomitant]
  4. BACTRIM [Concomitant]
  5. HYDROCORTISONE [Concomitant]
  6. CATAPRES [Concomitant]
  7. WARFARIN SODIUM [Concomitant]
  8. GANCICLOVIR SODIUM [Concomitant]
  9. LOPERAMIDE HYDROCHLORIDE [Concomitant]
  10. LOPRESSOR [Concomitant]
  11. NYSTATIN [Concomitant]
  12. PRILOSEC [Concomitant]
  13. FK (SODIUM BICARBONATE, CALCIUM CARBONATE, MAGNESIUM ALUMINUM SILICATE [Concomitant]

REACTIONS (2)
  - HEART RATE IRREGULAR [None]
  - TRANSPLANT REJECTION [None]
